FAERS Safety Report 16453534 (Version 1)
Quarter: 2019Q2

REPORT INFORMATION
  Report Type: Spontaneous
  Country: US (occurrence: US)
  Receive Date: 20190619
  Receipt Date: 20190619
  Transmission Date: 20190711
  Serious: No
  Sender: FDA-Public Use
  Company Number: US-EISAI MEDICAL RESEARCH-EC-2019-057780

PATIENT
  Age: 60 Year
  Sex: Female

DRUGS (1)
  1. BELVIQ [Suspect]
     Active Substance: LORCASERIN HYDROCHLORIDE
     Indication: WEIGHT DECREASED
     Route: 048
     Dates: start: 2017, end: 2018

REACTIONS (2)
  - Feeling jittery [Unknown]
  - Arthralgia [Unknown]
